FAERS Safety Report 15541461 (Version 1)
Quarter: 2018Q4

REPORT INFORMATION
  Report Type: Spontaneous
  Country: US (occurrence: US)
  Receive Date: 20181023
  Receipt Date: 20181023
  Transmission Date: 20190205
  Serious: No
  Sender: FDA-Public Use
  Company Number: US-TORRENT-00006148

PATIENT
  Age: 11 Year
  Sex: Male
  Weight: 36 kg

DRUGS (1)
  1. ESCITALOPRAM OXALATE TABLET [Suspect]
     Active Substance: ESCITALOPRAM OXALATE
     Indication: ANXIETY
     Dosage: ALWAYS IN THE MORNING
     Dates: start: 20171104

REACTIONS (4)
  - Drug intolerance [Recovered/Resolved]
  - Mood altered [Recovered/Resolved]
  - Aggression [Recovered/Resolved]
  - Product substitution issue [Unknown]
